FAERS Safety Report 5048519-7 (Version None)
Quarter: 2006Q3

REPORT INFORMATION
  Report Type: 
  Country: None (occurrence: None)
  Receive Date: 20060712
  Receipt Date: 20060703
  Transmission Date: 20061208
  Serious: Yes (Other)
  Sender: FDA-Public Use
  Company Number: 2006AC01238

PATIENT
  Sex: Male

DRUGS (1)
  1. SELOKEEN ZOC [Suspect]
     Route: 048

REACTIONS (5)
  - ASTHENIA [None]
  - DEPRESSED MOOD [None]
  - GENERAL PHYSICAL HEALTH DETERIORATION [None]
  - HEADACHE [None]
  - LOSS OF CONSCIOUSNESS [None]
